FAERS Safety Report 17804567 (Version 1)
Quarter: 2020Q2

REPORT INFORMATION
  Report Type: Spontaneous
  Country: US (occurrence: US)
  Receive Date: 20200519
  Receipt Date: 20200519
  Transmission Date: 20200714
  Serious: No
  Sender: FDA-Public Use
  Company Number: US-AKRON, INC.-2083967

PATIENT
  Age: 55 Year
  Sex: Male

DRUGS (1)
  1. CAPASTAT SULFATE [Suspect]
     Active Substance: CAPREOMYCIN SULFATE
     Route: 042

REACTIONS (1)
  - Anaemia [Unknown]
